FAERS Safety Report 25785812 (Version 1)
Quarter: 2025Q3

REPORT INFORMATION
  Report Type: Spontaneous
  Country: US (occurrence: None)
  Receive Date: 20250909
  Receipt Date: 20250909
  Transmission Date: 20251020
  Serious: Yes (Hospitalization)
  Sender: FDA-CTU
  Company Number: None

PATIENT
  Sex: Male
  Weight: 67.95 kg

DRUGS (4)
  1. DEVICE [Suspect]
     Active Substance: DEVICE
     Indication: Osteoporosis
     Dosage: FREQUENCY : TWICE A DAY;?
     Route: 055
     Dates: start: 20250402
  2. DEVICE [Suspect]
     Active Substance: DEVICE
     Indication: Chronic obstructive pulmonary disease
  3. OHTUVAYRE [Suspect]
     Active Substance: ENSIFENTRINE
  4. TYMLOS [Suspect]
     Active Substance: ABALOPARATIDE

REACTIONS (2)
  - Emphysema [None]
  - Condition aggravated [None]
